FAERS Safety Report 5110406-3 (Version None)
Quarter: 2006Q3

REPORT INFORMATION
  Report Type: 
  Country: None (occurrence: None)
  Receive Date: 20060918
  Receipt Date: 20060907
  Transmission Date: 20061208
  Serious: Yes (Other)
  Sender: FDA-Public Use
  Company Number: US-2006-024279

PATIENT
  Sex: Male

DRUGS (1)
  1. MIRENA [Suspect]
     Indication: CONTRACEPTION
     Dates: start: 20060608, end: 20060724

REACTIONS (4)
  - LACERATION [None]
  - MEDICAL DEVICE COMPLICATION [None]
  - PENILE HAEMORRHAGE [None]
  - PENIS DISORDER [None]
